FAERS Safety Report 9457318 (Version 2)
Quarter: 2013Q3

REPORT INFORMATION
  Report Type: Spontaneous
  Country: JP (occurrence: JP)
  Receive Date: 20130814
  Receipt Date: 20130917
  Transmission Date: 20140515
  Serious: Yes (Other)
  Sender: FDA-Public Use
  Company Number: PHHY2013JP086588

PATIENT
  Age: 80 Year
  Sex: Female
  Weight: 37 kg

DRUGS (8)
  1. FEMARA [Suspect]
     Indication: BREAST CANCER
     Dosage: 2.5 MG, DAILY
     Route: 048
     Dates: start: 20111107
  2. DIOVAN [Concomitant]
     Indication: HYPERTENSION
     Dosage: 80 MG, UNK
     Route: 048
     Dates: start: 20110523
  3. THYRADIN S [Concomitant]
     Indication: HYPOTHYROIDISM
     Dosage: 125 UG, UNK
     Route: 048
     Dates: start: 20020613
  4. BENET [Concomitant]
     Indication: OSTEOPOROSIS
     Dosage: 17.5 MG, UNK
     Route: 048
     Dates: start: 20130318
  5. ATORVASTATIN [Concomitant]
     Indication: DYSLIPIDAEMIA
     Dosage: 2.5 MG, UNK
     Route: 048
     Dates: start: 20020613
  6. AMLODIN [Concomitant]
     Indication: HYPERTENSION
     Dosage: 10 MG, UNK
     Route: 048
     Dates: start: 20051104
  7. RANITIDINE [Concomitant]
     Indication: GASTRIC ULCER
     Dosage: 150 MG, UNK
     Route: 048
     Dates: start: 20020613
  8. ISODINE GARGLE [Concomitant]
     Dosage: UNK UKN, UNK

REACTIONS (1)
  - Hypokalaemia [Recovering/Resolving]
